FAERS Safety Report 8881159 (Version 1)
Quarter: 2012Q4

REPORT INFORMATION
  Report Type: 
  Country: EC (occurrence: EC)
  Receive Date: 20121031
  Receipt Date: 20121031
  Transmission Date: 20130627
  Serious: Yes (Death, Hospitalization)
  Sender: FDA-Public Use
  Company Number: PHHY2012EC098692

PATIENT
  Age: 87 Year
  Sex: Female

DRUGS (1)
  1. EXFORGE HCT [Suspect]
     Indication: HYPERTENSION
     Dosage: 1 DF, 1 tablet (valsartan 160mg, amlodipine 5mg and hydrochlorothiazide 12.5mg) daily
     Route: 048

REACTIONS (1)
  - Death [Fatal]
